FAERS Safety Report 19191022 (Version 1)
Quarter: 2021Q2

REPORT INFORMATION
  Report Type: Spontaneous
  Country: US (occurrence: US)
  Receive Date: 20210428
  Receipt Date: 20210428
  Transmission Date: 20210717
  Serious: No
  Sender: FDA-Public Use
  Company Number: US-JNJFOC-20210424138

PATIENT
  Age: 56 Year
  Sex: Female

DRUGS (2)
  1. SPRAVATO [Suspect]
     Active Substance: ESKETAMINE
     Indication: DEPRESSION
     Route: 045
  2. PRAZOSIN. [Concomitant]
     Active Substance: PRAZOSIN
     Indication: NIGHTMARE
     Route: 065

REACTIONS (4)
  - Nightmare [Unknown]
  - Confusional state [Unknown]
  - Amnesia [Unknown]
  - Headache [Unknown]
